FAERS Safety Report 18325629 (Version 1)
Quarter: 2020Q3

REPORT INFORMATION
  Report Type: Spontaneous
  Country: US (occurrence: US)
  Receive Date: 20200929
  Receipt Date: 20200929
  Transmission Date: 20201103
  Serious: Yes (Life-Threatening, Other)
  Sender: FDA-Public Use
  Company Number: US-AKRON, INC.-2092279

PATIENT
  Age: 12 Year

DRUGS (3)
  1. BETA BLOCKING AGENTS [Suspect]
     Active Substance: UNSPECIFIED INGREDIENT
  2. EPINEPHRINE. [Suspect]
     Active Substance: EPINEPHRINE
     Route: 050
  3. PHENYLEPHRINE HYDROCHLORIDE. [Suspect]
     Active Substance: PHENYLEPHRINE HYDROCHLORIDE
     Indication: HAEMORRHAGE
     Route: 061

REACTIONS (2)
  - Cardiac arrest [Recovered/Resolved]
  - Off label use [Recovered/Resolved]
